FAERS Safety Report 20052303 (Version 1)
Quarter: 2021Q4

REPORT INFORMATION
  Report Type: Spontaneous
  Country: US (occurrence: US)
  Receive Date: 20211110
  Receipt Date: 20211110
  Transmission Date: 20220303
  Serious: No
  Sender: FDA-Public Use
  Company Number: US-SA-SAC20211106000187

PATIENT
  Sex: Female

DRUGS (10)
  1. DUPIXENT [Suspect]
     Active Substance: DUPILUMAB
     Indication: Dermatitis atopic
     Dosage: 600 MG, 1X
     Route: 058
     Dates: start: 202110, end: 202110
  2. TRIAMCINOLONE ACETONIDE [Concomitant]
     Active Substance: TRIAMCINOLONE ACETONIDE
  3. HYDROCORTISONE [Concomitant]
     Active Substance: HYDROCORTISONE
  4. CEFUROXIME [Concomitant]
     Active Substance: CEFUROXIME
  5. PREDNISONE [Concomitant]
     Active Substance: PREDNISONE
  6. EUCRISA [Concomitant]
     Active Substance: CRISABOROLE
  7. AMOXICILLIN [Concomitant]
     Active Substance: AMOXICILLIN
  8. IBUPROFEN [Concomitant]
     Active Substance: IBUPROFEN
  9. MOMETASONE FUROATE [Concomitant]
     Active Substance: MOMETASONE FUROATE
  10. AFLURIA QUAD [Concomitant]

REACTIONS (1)
  - Dermatitis atopic [Unknown]

NARRATIVE: CASE EVENT DATE: 20210101
